FAERS Safety Report 8648830 (Version 3)
Quarter: 2012Q4

REPORT INFORMATION
  Report Type: 
  Country: US (occurrence: US)
  Receive Date: 20120704
  Receipt Date: 20120830
  Transmission Date: 20130627
  Serious: Yes (Hospitalization)
  Sender: FDA-Public Use
  Company Number: US-BIOGENIDEC-2012BI023194

PATIENT
  Age: 34 Year
  Sex: Female

DRUGS (7)
  1. TYSABRI [Suspect]
     Indication: MULTIPLE SCLEROSIS
     Route: 042
     Dates: start: 20110401, end: 20120525
  2. TOPAMAX [Concomitant]
  3. LYRICA [Concomitant]
  4. CYMBALTA [Concomitant]
  5. PROTONIX [Concomitant]
  6. LEVOTHYROXINE [Concomitant]
  7. RESTORIL [Concomitant]

REACTIONS (1)
  - Serum sickness [Recovered/Resolved]
